FAERS Safety Report 18963312 (Version 5)
Quarter: 2021Q2

REPORT INFORMATION
  Report Type: Report from Study
  Country: GB (occurrence: GB)
  Receive Date: 20210303
  Receipt Date: 20210401
  Transmission Date: 20210717
  Serious: Yes (Hospitalization, Other)
  Sender: FDA-Public Use
  Company Number: GB-SAMSUNG BIOEPIS-SB-2021-05287

PATIENT
  Age: 58 Year
  Sex: Female

DRUGS (1)
  1. IMRALDI [Suspect]
     Active Substance: ADALIMUMAB
     Indication: RHEUMATOID ARTHRITIS
     Route: 058
     Dates: start: 20210114

REACTIONS (9)
  - Chest pain [Unknown]
  - Haematochezia [Unknown]
  - Arteriosclerosis [Unknown]
  - Dyskinesia [Unknown]
  - Palpitations [Unknown]
  - Paraesthesia [Unknown]
  - Feeling of body temperature change [Unknown]
  - Cough [Unknown]
  - Dyspnoea [Unknown]

NARRATIVE: CASE EVENT DATE: 20210223
